FAERS Safety Report 19686638 (Version 4)
Quarter: 2022Q4

REPORT INFORMATION
  Report Type: Report from Study
  Country: CA (occurrence: CA)
  Receive Date: 20210811
  Receipt Date: 20221109
  Transmission Date: 20230112
  Serious: Yes (Other)
  Sender: FDA-Public Use
  Company Number: CA-TAKEDA-2021TUS048601

PATIENT
  Age: 38 Year
  Sex: Male

DRUGS (2)
  1. VEDOLIZUMAB [Suspect]
     Active Substance: VEDOLIZUMAB
     Indication: Crohn^s disease
     Dosage: 300 MILLIGRAM
     Route: 042
     Dates: start: 20201130
  2. METHOTREXATE [Concomitant]
     Active Substance: METHOTREXATE
     Dosage: 25 MILLIGRAM
     Dates: start: 201501

REACTIONS (7)
  - Prostate infection [Recovered/Resolved]
  - Skin exfoliation [Unknown]
  - Erythema [Unknown]
  - Skin disorder [Unknown]
  - Irritable bowel syndrome [Unknown]
  - Cystitis [Recovered/Resolved]
  - Arthralgia [Unknown]
